FAERS Safety Report 13283917 (Version 2)
Quarter: 2017Q1

REPORT INFORMATION
  Report Type: Other
  Country: JP (occurrence: JP)
  Receive Date: 20170301
  Receipt Date: 20170324
  Transmission Date: 20170428
  Serious: Yes (Other)
  Sender: FDA-Public Use
  Company Number: JP-EMD SERONO-8144054

PATIENT
  Age: 16 Year
  Sex: Male

DRUGS (1)
  1. SAIZEN [Suspect]
     Active Substance: SOMATROPIN
     Indication: HYPOPITUITARISM

REACTIONS (6)
  - Vulval disorder [Unknown]
  - Micropenis [Unknown]
  - Urinary incontinence [Unknown]
  - Bone density decreased [Unknown]
  - Hypothyroidism [Unknown]
  - Nocturia [Unknown]
